FAERS Safety Report 7653353-5 (Version None)
Quarter: 2011Q3

REPORT INFORMATION
  Report Type: 
  Country: None (occurrence: None)
  Receive Date: 20110803
  Receipt Date: 20110729
  Transmission Date: 20111222
  Serious: Yes (Other)
  Sender: FDA-Public Use
  Company Number: US-PFIZER INC-2011173451

PATIENT
  Sex: Female

DRUGS (1)
  1. GABAPENTIN [Suspect]
     Dosage: 300 MG,DAILY
     Dates: start: 20110728

REACTIONS (5)
  - DYSSTASIA [None]
  - DIZZINESS [None]
  - DIPLOPIA [None]
  - SENSATION OF HEAVINESS [None]
  - INSOMNIA [None]
